FAERS Safety Report 12324406 (Version 1)
Quarter: 2016Q2

REPORT INFORMATION
  Report Type: Spontaneous
  Country: US (occurrence: US)
  Receive Date: 20160502
  Receipt Date: 20160502
  Transmission Date: 20160815
  Serious: No
  Sender: FDA-Public Use
  Company Number: US-ABBVIE-15P-163-1481330-00

PATIENT
  Age: 57 Year
  Sex: Male
  Weight: 109.87 kg

DRUGS (4)
  1. PREDNISONE. [Concomitant]
     Active Substance: PREDNISONE
     Indication: CLOSTRIDIUM DIFFICILE COLITIS
     Dates: start: 2009
  2. ANDROGEL [Suspect]
     Active Substance: TESTOSTERONE
     Indication: CRANIOCEREBRAL INJURY
     Dosage: 2 PUMPS DAILY
     Route: 061
     Dates: start: 20150804
  3. ANDROGEL [Suspect]
     Active Substance: TESTOSTERONE
     Indication: SECONDARY HYPOGONADISM
     Dosage: 1 PUMP DAILY
     Route: 061
     Dates: start: 20150611, end: 20150804
  4. FLAGYL [Concomitant]
     Active Substance: METRONIDAZOLE\METRONIDAZOLE HYDROCHLORIDE
     Indication: CLOSTRIDIUM DIFFICILE COLITIS

REACTIONS (3)
  - Skin burning sensation [Not Recovered/Not Resolved]
  - Pituitary tumour [Not Recovered/Not Resolved]
  - Laceration [Not Recovered/Not Resolved]

NARRATIVE: CASE EVENT DATE: 201509
